FAERS Safety Report 15561717 (Version 1)
Quarter: 2018Q4

REPORT INFORMATION
  Report Type: Spontaneous
  Country: US (occurrence: US)
  Receive Date: 20181029
  Receipt Date: 20181029
  Transmission Date: 20190205
  Serious: Yes (Hospitalization)
  Sender: FDA-Public Use
  Company Number: US-ADAAP-201800177

PATIENT
  Age: 55 Year
  Sex: Female
  Weight: 65.5 kg

DRUGS (3)
  1. LUTATHERA [Suspect]
     Active Substance: LUTETIUM OXODOTREOTIDE LU-177
     Indication: PANCREATIC NEUROENDOCRINE TUMOUR
     Route: 042
     Dates: start: 20181017, end: 20181017
  2. AMINO ACID [Concomitant]
     Active Substance: AMINO ACIDS
     Indication: PRODUCT USED FOR UNKNOWN INDICATION
     Route: 041
     Dates: start: 20181017, end: 20181017
  3. LUTATHERA [Suspect]
     Active Substance: LUTETIUM OXODOTREOTIDE LU-177
     Indication: PANCREATIC NEUROENDOCRINE TUMOUR
     Route: 042
     Dates: start: 20180822, end: 20180822

REACTIONS (4)
  - Hyperkalaemia [Recovered/Resolved]
  - Nausea [Unknown]
  - Muscular weakness [Unknown]
  - Vomiting [Unknown]

NARRATIVE: CASE EVENT DATE: 20181017
